FAERS Safety Report 12307531 (Version 1)
Quarter: 2016Q2

REPORT INFORMATION
  Report Type: Spontaneous
  Country: AU (occurrence: AU)
  Receive Date: 20160426
  Receipt Date: 20160426
  Transmission Date: 20160815
  Serious: Yes (Other)
  Sender: FDA-Public Use
  Company Number: AU-HQ SPECIALTY-AU-2016INT000197

PATIENT
  Age: 21 Year
  Sex: Female

DRUGS (4)
  1. CISPLATIN. [Suspect]
     Active Substance: CISPLATIN
     Indication: OVARIAN GERM CELL TERATOMA
     Dosage: 20 MG/M2, QD
  2. CISPLATIN. [Suspect]
     Active Substance: CISPLATIN
     Dosage: UNK
  3. ETOPOSIDE. [Suspect]
     Active Substance: ETOPOSIDE
     Dosage: UNK
  4. ETOPOSIDE. [Suspect]
     Active Substance: ETOPOSIDE
     Indication: OVARIAN CANCER
     Dosage: 100 MG/M2, QD

REACTIONS (2)
  - Alpha 1 foetoprotein increased [Recovered/Resolved]
  - Ovarian germ cell teratoma [Recovered/Resolved]
